FAERS Safety Report 22067110 (Version 5)
Quarter: 2023Q4

REPORT INFORMATION
  Report Type: Spontaneous
  Country: JP (occurrence: JP)
  Receive Date: 20230307
  Receipt Date: 20231024
  Transmission Date: 20240109
  Serious: Yes (Other)
  Sender: FDA-Public Use
  Company Number: JP-BRISTOL-MYERS SQUIBB COMPANY-2023-030898

PATIENT
  Age: 7 Decade
  Sex: Male

DRUGS (4)
  1. YERVOY [Suspect]
     Active Substance: IPILIMUMAB
     Indication: Malignant melanoma
     Route: 041
  2. OPDIVO [Suspect]
     Active Substance: NIVOLUMAB
     Indication: Malignant melanoma
     Route: 041
  3. OPDIVO [Suspect]
     Active Substance: NIVOLUMAB
     Route: 041
  4. TRANILAST [Concomitant]
     Active Substance: TRANILAST
     Indication: Hypertrophic scar
     Route: 048

REACTIONS (3)
  - Immune-mediated hepatic disorder [Recovered/Resolved]
  - Immune-mediated cystitis [Recovered/Resolved]
  - Pyrexia [Recovered/Resolved]
